FAERS Safety Report 17876395 (Version 1)
Quarter: 2020Q2

REPORT INFORMATION
  Report Type: Spontaneous
  Country: JP (occurrence: JP)
  Receive Date: 20200609
  Receipt Date: 20200609
  Transmission Date: 20200714
  Serious: Yes (Other)
  Sender: FDA-Public Use
  Company Number: NVSJ2020JP002791

PATIENT
  Sex: Male

DRUGS (1)
  1. NEORAL [Suspect]
     Active Substance: CYCLOSPORINE
     Indication: AUTOIMMUNE DISORDER
     Dosage: UNK
     Route: 065

REACTIONS (2)
  - Fall [Unknown]
  - Fracture [Unknown]
